FAERS Safety Report 10350139 (Version 2)
Quarter: 2014Q3

REPORT INFORMATION
  Report Type: Spontaneous
  Country: BR (occurrence: BR)
  Receive Date: 20140730
  Receipt Date: 20140730
  Transmission Date: 20150326
  Serious: Yes (Hospitalization, Other)
  Sender: FDA-Public Use
  Company Number: BR-SA-2014SA085768

PATIENT
  Sex: Male
  Weight: 45 kg

DRUGS (4)
  1. INSULIN PEN NOS [Concomitant]
     Active Substance: INSULIN NOS
     Indication: DEVICE THERAPY
  2. LANTUS [Suspect]
     Active Substance: INSULIN GLARGINE
     Indication: TYPE 1 DIABETES MELLITUS
     Route: 065
     Dates: start: 2009
  3. LOSARTAN [Concomitant]
     Active Substance: LOSARTAN
     Indication: HYPERTENSION
     Route: 048
  4. VITAMIN D [Concomitant]
     Active Substance: CHOLECALCIFEROL
     Indication: VITAMIN D DEFICIENCY
     Route: 048

REACTIONS (9)
  - Visual impairment [Unknown]
  - Blood glucose increased [Unknown]
  - Diabetic retinopathy [Not Recovered/Not Resolved]
  - Eye haemorrhage [Not Recovered/Not Resolved]
  - Blindness unilateral [Unknown]
  - Blood glucose abnormal [Unknown]
  - Blindness [Unknown]
  - Visual acuity reduced [Unknown]
  - Depression [Not Recovered/Not Resolved]

NARRATIVE: CASE EVENT DATE: 2012
